FAERS Safety Report 23960787 (Version 1)
Quarter: 2024Q2

REPORT INFORMATION
  Report Type: Spontaneous
  Country: US (occurrence: None)
  Receive Date: 20240609
  Receipt Date: 20240609
  Transmission Date: 20240716
  Serious: No
  Sender: FDA-Public Use
  Company Number: None

PATIENT
  Age: 71 Year
  Sex: Female
  Weight: 49.5 kg

DRUGS (8)
  1. EVENITY [Suspect]
     Active Substance: ROMOSOZUMAB-AQQG
     Indication: Osteoporosis
     Dosage: OTHER QUANTITY : 2 INJECTION(S);?OTHER FREQUENCY : 1X 30 DAYS;?
     Route: 058
     Dates: start: 20240509
  2. IPRATROPIUM BROMIDE [Concomitant]
     Active Substance: IPRATROPIUM BROMIDE\IPRATROPIUM BROMIDE ANHYDROUS
  3. EVENITY [Concomitant]
     Active Substance: ROMOSOZUMAB-AQQG
  4. VITAMINS [Concomitant]
     Active Substance: VITAMINS
  5. CALCIUM CITRATE [Concomitant]
     Active Substance: CALCIUM CITRATE
  6. BORON [Concomitant]
     Active Substance: BORON
  7. Vitamin K2 (M-7) [Concomitant]
  8. MAGNESIUM [Concomitant]
     Active Substance: MAGNESIUM

REACTIONS (5)
  - Injection site rash [None]
  - Fatigue [None]
  - Injection site pain [None]
  - Injection site pain [None]
  - Therapy cessation [None]

NARRATIVE: CASE EVENT DATE: 20240509
